FAERS Safety Report 18264224 (Version 7)
Quarter: 2022Q2

REPORT INFORMATION
  Report Type: Spontaneous
  Country: IT (occurrence: IT)
  Receive Date: 20200914
  Receipt Date: 20220411
  Transmission Date: 20220721
  Serious: Yes (Death, Other)
  Sender: FDA-Public Use
  Company Number: None

PATIENT
  Age: 59 Year
  Sex: Male

DRUGS (14)
  1. TRASTUZUMAB [Suspect]
     Active Substance: TRASTUZUMAB
     Indication: Salivary gland cancer
     Dosage: 4 MILLIGRAM/KILOGRAM, QW,((FOURTH-LINE CT, LOADING DOSE))
     Route: 065
  2. TRASTUZUMAB [Suspect]
     Active Substance: TRASTUZUMAB
     Dosage: 2 MG/KG (FOURTH-LINE CT)
     Route: 065
  3. TRASTUZUMAB [Suspect]
     Active Substance: TRASTUZUMAB
     Dosage: 6 MILLIGRAM/KILOGRAM, 3XW (~CONTINUED WITH 3-WEEKLY TRASTUZUMAB (6 MG/KG) FOR 10 MONTHS)
     Route: 065
  4. TRASTUZUMAB [Suspect]
     Active Substance: TRASTUZUMAB
     Dosage: LOADING DOSE 4 MG/KG, THEN 2 MG/KG FOR SIX CYCLES
  5. TRASTUZUMAB [Suspect]
     Active Substance: TRASTUZUMAB
     Dosage: 18 MILLIGRAM/KILOGRAM, QW (6 MG/KG (3-WEEKLY))
  6. PACLITAXEL [Suspect]
     Active Substance: PACLITAXEL
     Indication: Salivary gland cancer
     Dosage: 80 MG/M2, SIX CYCLES, SECOND LINE, (FOURTH-LINE CT))
     Route: 065
  7. VINORELBINE [Suspect]
     Active Substance: VINORELBINE TARTRATE
     Indication: Salivary gland cancer
     Dosage: 25 MG/M2 ON DAYS 1 AND 8 OF 21-DAY CYLCE
  8. CISPLATIN [Suspect]
     Active Substance: CISPLATIN
     Indication: Salivary gland cancer
     Dosage: RECEIVED 3 WEEKLY AS FIRST-LINE CHEMOTHERAPY, 6 CYCLES
     Route: 065
  9. DOXORUBICIN [Suspect]
     Active Substance: DOXORUBICIN
     Indication: Salivary gland cancer
     Dosage: RECEIVED 3 WEEKLY AS FIRST-LINE CHEMOTHERAPY, 6 CYCLES
     Route: 065
  10. CARBOPLATIN [Suspect]
     Active Substance: CARBOPLATIN
     Indication: Salivary gland cancer
     Dosage: AUC2, WEEKLY (FOURTH-LINE CT)
     Route: 065
  11. CARBOPLATIN [Suspect]
     Active Substance: CARBOPLATIN
     Dosage: SIX CYCLES, SECOND LINE
  12. CARBOPLATIN [Suspect]
     Active Substance: CARBOPLATIN
     Dosage: UNK, QW
     Route: 065
  13. LEUPROLIDE ACETATE [Suspect]
     Active Substance: LEUPROLIDE ACETATE
     Indication: Salivary gland cancer
     Dosage: 3.75 MILLIGRAM, MONTHLY
     Route: 065
  14. CYCLOPHOSPHAMIDE [Suspect]
     Active Substance: CYCLOPHOSPHAMIDE
     Indication: Salivary gland cancer
     Dosage: 600 MILLIGRAM/SQ. METER
     Route: 065

REACTIONS (18)
  - Death [Fatal]
  - Headache [Fatal]
  - Therapy partial responder [Fatal]
  - General physical health deterioration [Fatal]
  - Epilepsy [Fatal]
  - Central nervous system lesion [Fatal]
  - Drug ineffective for unapproved indication [Unknown]
  - Cardiac dysfunction [Unknown]
  - Asthenia [Unknown]
  - Streptococcal endocarditis [Unknown]
  - Ejection fraction decreased [Unknown]
  - Anaemia [Unknown]
  - Pneumonia [Recovered/Resolved]
  - Febrile neutropenia [Recovered/Resolved]
  - Off label use [Unknown]
  - Leukopenia [Unknown]
  - Intentional product use issue [Unknown]
  - Fatigue [Unknown]

NARRATIVE: CASE EVENT DATE: 20191201
